FAERS Safety Report 24376897 (Version 1)
Quarter: 2024Q3

REPORT INFORMATION
  Report Type: Spontaneous
  Country: US (occurrence: US)
  Receive Date: 20240930
  Receipt Date: 20240930
  Transmission Date: 20241017
  Serious: No
  Sender: BRISTOL MYERS SQUIBB
  Company Number: US-BRISTOL-MYERS SQUIBB COMPANY-2024-149229

PATIENT
  Age: 52 Year
  Sex: Male
  Weight: 112.9 kg

DRUGS (1)
  1. ORENCIA [Suspect]
     Active Substance: ABATACEPT
     Indication: Rheumatoid arthritis
     Route: 042
     Dates: start: 2023

REACTIONS (4)
  - Pyrexia [Unknown]
  - Malaise [Unknown]
  - Respiratory tract congestion [Unknown]
  - Rhinorrhoea [Unknown]
